FAERS Safety Report 4686676-2 (Version None)
Quarter: 2005Q2

REPORT INFORMATION
  Report Type: 
  Country: None (occurrence: None)
  Receive Date: 20050606
  Receipt Date: 20050524
  Transmission Date: 20051028
  Serious: Yes (Hospitalization)
  Sender: FDA-Public Use
  Company Number: GBS050517493

PATIENT
  Sex: Male

DRUGS (2)
  1. TERIPARATIDE [Suspect]
     Dates: start: 20050301
  2. METHOTREXATE [Concomitant]

REACTIONS (2)
  - HYPOCALCAEMIA [None]
  - PHARYNGEAL ULCERATION [None]
